FAERS Safety Report 11719385 (Version 1)
Quarter: 2015Q4

REPORT INFORMATION
  Report Type: Spontaneous
  Country: US (occurrence: None)
  Receive Date: 20151109
  Receipt Date: 20151109
  Transmission Date: 20160304
  Serious: Yes (Life-Threatening, Other)
  Sender: FDA-Public Use
  Company Number: None

PATIENT
  Age: 5 Year
  Sex: Female
  Weight: 24.95 kg

DRUGS (1)
  1. AZITHROMYCIN 200/5ML ELSA PHARMACY [Suspect]
     Active Substance: AZITHROMYCIN ANHYDROUS
     Indication: NASOPHARYNGITIS
     Dosage: 1 TEASPOONFUL?ONCE DAILY?TAKEN BY MOUTH
     Route: 048
     Dates: start: 20151105, end: 20151106

REACTIONS (5)
  - Pyrexia [None]
  - Poisoning [None]
  - Headache [None]
  - Product preparation error [None]
  - Nausea [None]

NARRATIVE: CASE EVENT DATE: 20151105
